FAERS Safety Report 6263394-0 (Version None)
Quarter: 2009Q3

REPORT INFORMATION
  Report Type: 
  Country: None (occurrence: None)
  Receive Date: 20090710
  Receipt Date: 20081013
  Transmission Date: 20100115
  Serious: No
  Sender: FDA-Public Use
  Company Number: A0751788A

PATIENT
  Age: 62 Year
  Sex: Female

DRUGS (6)
  1. FLOVENT [Suspect]
     Indication: ASTHMA
     Dosage: 44MCG PER DAY
     Route: 055
     Dates: start: 20060101
  2. SPIRIVA [Concomitant]
  3. PREMARIN [Concomitant]
  4. ESTRACE [Concomitant]
  5. MEDROXYPROGESTERONE [Concomitant]
  6. THYROID TAB [Concomitant]

REACTIONS (2)
  - PRURITUS [None]
  - RASH [None]
